FAERS Safety Report 6664574-2 (Version None)
Quarter: 2010Q2

REPORT INFORMATION
  Report Type: 
  Country: None (occurrence: None)
  Receive Date: 20100401
  Receipt Date: 20100323
  Transmission Date: 20101027
  Serious: Yes (Other)
  Sender: FDA-Public Use
  Company Number: BE-ABBOTT-10P-013-0634570-00

PATIENT
  Sex: Female
  Weight: 60 kg

DRUGS (4)
  1. HUMIRA [Suspect]
     Indication: PSORIATIC ARTHROPATHY
     Dates: start: 20070626, end: 20100215
  2. NOBITEN [Concomitant]
     Indication: HYPERTENSION
     Dates: start: 20050101
  3. MODURETIC 5-50 [Concomitant]
     Indication: DRUG USE FOR UNKNOWN INDICATION
     Dosage: AMILORIDE 5MG + HYDROCHLOROTHIAZIDE 50MG
  4. SIMVASTATIN [Concomitant]
     Indication: DRUG USE FOR UNKNOWN INDICATION

REACTIONS (5)
  - DYSPNOEA [None]
  - FATIGUE [None]
  - HYPERTENSION [None]
  - RENAL FAILURE ACUTE [None]
  - SWELLING FACE [None]
